FAERS Safety Report 18277424 (Version 1)
Quarter: 2020Q3

REPORT INFORMATION
  Report Type: Spontaneous
  Country: JP (occurrence: JP)
  Receive Date: 20200917
  Receipt Date: 20200917
  Transmission Date: 20201103
  Serious: Yes (Hospitalization)
  Sender: FDA-Public Use
  Company Number: JP-JNJFOC-A-CH2018-181001

PATIENT
  Age: 86 Year
  Sex: Female

DRUGS (18)
  1. TIZANIDINE. [Concomitant]
     Active Substance: TIZANIDINE
  2. OPALMON [Concomitant]
     Active Substance: LIMAPROST
  3. PREDNISOLONE. [Concomitant]
     Active Substance: PREDNISOLONE
  4. ALFACALCIDOL [Concomitant]
     Active Substance: ALFACALCIDOL
  5. CALONAL [Concomitant]
     Active Substance: ACETAMINOPHEN
  6. MAGMITT [Concomitant]
     Active Substance: MAGNESIUM OXIDE
  7. OPSUMIT [Suspect]
     Active Substance: MACITENTAN
     Indication: PULMONARY HYPERTENSION
     Dosage: 10 MG, QD
     Route: 048
     Dates: start: 20180618
  8. WARFARIN [Suspect]
     Active Substance: WARFARIN
     Indication: DEEP VEIN THROMBOSIS
     Dosage: 1.5 MG, QD
     Route: 050
     Dates: start: 20130305, end: 20181025
  9. TAKECAB [Concomitant]
     Active Substance: VONOPRAZAN FUMARATE
     Indication: GASTROINTESTINAL HAEMORRHAGE
     Dates: start: 20181024
  10. LIXIANA [Concomitant]
     Active Substance: EDOXABAN TOSYLATE
     Indication: GASTROINTESTINAL HAEMORRHAGE
  11. FEBURIC [Concomitant]
     Active Substance: FEBUXOSTAT
  12. ZETIA [Concomitant]
     Active Substance: EZETIMIBE
  13. OXYGEN. [Concomitant]
     Active Substance: OXYGEN
  14. ETIZOLAM [Concomitant]
     Active Substance: ETIZOLAM
  15. METHYCOBAL [Concomitant]
     Active Substance: METHYLCOBALAMIN
  16. LIPIDIL [Concomitant]
     Active Substance: FENOFIBRATE
  17. FUROSEMIDE. [Concomitant]
     Active Substance: FUROSEMIDE
  18. SAMSCA [Concomitant]
     Active Substance: TOLVAPTAN

REACTIONS (7)
  - Off label use [Not Recovered/Not Resolved]
  - Anaemia [Recovering/Resolving]
  - Faeces discoloured [Recovered/Resolved]
  - Pneumonia [Recovered/Resolved]
  - Gastrointestinal haemorrhage [Recovered/Resolved]
  - Transfusion [Unknown]
  - Haematochezia [Recovered/Resolved]

NARRATIVE: CASE EVENT DATE: 20180626
